FAERS Safety Report 18654370 (Version 1)
Quarter: 2020Q4

REPORT INFORMATION
  Report Type: Spontaneous
  Country: US (occurrence: US)
  Receive Date: 20201223
  Receipt Date: 20201223
  Transmission Date: 20210114
  Serious: No
  Sender: FDA-Public Use
  Company Number: US-SA-2020SA363955

PATIENT

DRUGS (1)
  1. APIDRA [Suspect]
     Active Substance: INSULIN GLULISINE
     Dosage: UNK

REACTIONS (10)
  - Rash [Not Recovered/Not Resolved]
  - Blood glucose abnormal [Unknown]
  - Hypersensitivity [Unknown]
  - Flushing [Unknown]
  - Middle insomnia [Unknown]
  - Multiple use of single-use product [Unknown]
  - Dermatitis [Not Recovered/Not Resolved]
  - Nasal congestion [Unknown]
  - Injection site pain [Unknown]
  - Injection site mass [Unknown]
